FAERS Safety Report 5123876-1 (Version None)
Quarter: 2006Q4

REPORT INFORMATION
  Report Type: 
  Country: None (occurrence: None)
  Receive Date: 20061010
  Receipt Date: 20061003
  Transmission Date: 20070319
  Serious: Yes (Hospitalization, Other)
  Sender: FDA-Public Use
  Company Number: EG-GLAXOSMITHKLINE-B0441373A

PATIENT
  Age: 60 Year
  Sex: Male

DRUGS (1)
  1. TOPOTECAN [Suspect]
     Dosage: 2.5MGM2 WEEKLY
     Route: 042
     Dates: start: 20060909

REACTIONS (2)
  - DIABETIC COMA [None]
  - FATIGUE [None]
